FAERS Safety Report 6415328-3 (Version None)
Quarter: 2009Q4

REPORT INFORMATION
  Report Type: 
  Country: None (occurrence: None)
  Receive Date: 20091027
  Receipt Date: 20091021
  Transmission Date: 20100525
  Serious: Yes (Hospitalization)
  Sender: FDA-Public Use
  Company Number: PHEH2009US13504

PATIENT
  Sex: Female

DRUGS (4)
  1. MYFORTIC [Suspect]
     Dosage: 360 MG, BID
     Route: 048
     Dates: start: 20090924
  2. MYFORTIC [Suspect]
     Dosage: 3 TABS TWICE DAILY
  3. PILOCARPINE HYDROCHLORIDE [Concomitant]
  4. PREDNISONE [Concomitant]

REACTIONS (4)
  - CEREBROVASCULAR ACCIDENT [None]
  - CHEST PAIN [None]
  - LYMPHADENOPATHY [None]
  - TREATMENT NONCOMPLIANCE [None]
